APPROVED DRUG PRODUCT: GEMCITABINE HYDROCHLORIDE
Active Ingredient: GEMCITABINE HYDROCHLORIDE
Strength: EQ 1GM BASE/VIAL
Dosage Form/Route: INJECTABLE;INJECTION
Application: A202063 | Product #002
Applicant: EMCURE PHARMACEUTICALS LTD
Approved: Sep 11, 2012 | RLD: No | RS: No | Type: DISCN